FAERS Safety Report 9148498 (Version 1)
Quarter: 2013Q1

REPORT INFORMATION
  Report Type: Spontaneous
  Country: US (occurrence: None)
  Receive Date: 20130228
  Receipt Date: 20130228
  Transmission Date: 20140127
  Serious: Yes (Hospitalization)
  Sender: FDA-Public Use
  Company Number: None

PATIENT
  Age: 51 Year
  Sex: Male
  Weight: 91.01 kg

DRUGS (1)
  1. IMIPENEM AND CILASTATIN [Suspect]
     Indication: PANCREAS INFECTION
     Route: 042
     Dates: start: 20130215, end: 20130221

REACTIONS (1)
  - Hypersensitivity [None]
